FAERS Safety Report 5192879-3 (Version None)
Quarter: 2006Q4

REPORT INFORMATION
  Report Type: 
  Country: None (occurrence: None)
  Receive Date: 20061228
  Receipt Date: 20060126
  Transmission Date: 20070319
  Serious: No
  Sender: FDA-Public Use
  Company Number: US-GLAXOSMITHKLINE-A0591110A

PATIENT
  Age: 56 Year
  Sex: Male

DRUGS (5)
  1. FLONASE [Suspect]
     Dosage: 4PUFF PER DAY
     Route: 045
     Dates: start: 20060123
  2. REMERON [Concomitant]
  3. KLONOPIN [Concomitant]
  4. AMBIEN [Concomitant]
  5. TRAMADOL HCL [Concomitant]

REACTIONS (3)
  - DRUG INEFFECTIVE [None]
  - NAUSEA [None]
  - PAIN [None]
